FAERS Safety Report 15822522 (Version 1)
Quarter: 2019Q1

REPORT INFORMATION
  Report Type: Spontaneous
  Country: US (occurrence: US)
  Receive Date: 20190114
  Receipt Date: 20190114
  Transmission Date: 20190417
  Serious: Yes (Hospitalization, Other)
  Sender: FDA-Public Use
  Company Number: US-PFIZER INC-2019013368

PATIENT
  Age: 47 Year
  Sex: Female
  Weight: 68.4 kg

DRUGS (5)
  1. LYRICA [Suspect]
     Active Substance: PREGABALIN
     Indication: FIBROMYALGIA
     Dosage: UNK
     Dates: start: 2014
  2. LYRICA [Suspect]
     Active Substance: PREGABALIN
     Indication: SEIZURE
  3. DULOXETINE. [Concomitant]
     Active Substance: DULOXETINE
     Dosage: 90 MG, DAILY [60MG IN THE MORNING AND 30MG AT NIGHT]
  4. ALEVE [Concomitant]
     Active Substance: NAPROXEN SODIUM
     Indication: DEPRESSION
     Dosage: 220 MG, UNK
  5. PHENOBARBITAL. [Concomitant]
     Active Substance: PHENOBARBITAL
     Indication: SEIZURE
     Dosage: 194.4 MG, DAILY

REACTIONS (4)
  - Condition aggravated [Unknown]
  - Petit mal epilepsy [Unknown]
  - Coma [Recovered/Resolved]
  - Generalised tonic-clonic seizure [Unknown]

NARRATIVE: CASE EVENT DATE: 201804
